FAERS Safety Report 4341135-1 (Version None)
Quarter: 2004Q2

REPORT INFORMATION
  Report Type: 
  Country: None (occurrence: None)
  Receive Date: 20040419
  Receipt Date: 20020227
  Transmission Date: 20050107
  Serious: Yes (Death, Hospitalization)
  Sender: FDA-Public Use
  Company Number: US-GLAXOSMITHKLINE-A0360854A

PATIENT
  Age: 74 Year
  Sex: Female

DRUGS (14)
  1. LOTRONEX [Suspect]
     Indication: IRRITABLE BOWEL SYNDROME
     Dosage: 1MG AS REQUIRED
     Route: 048
     Dates: start: 20000523
  2. PRILOSEC [Concomitant]
  3. LASIX [Concomitant]
  4. POTASSIUM [Concomitant]
  5. MIRAPEX [Concomitant]
  6. SINEMET [Concomitant]
  7. PROZAC [Concomitant]
  8. DITROPAN [Concomitant]
  9. SYNTHROID [Concomitant]
  10. MULTIVITAMIN [Concomitant]
  11. XANAX [Concomitant]
  12. ARTHROTEC [Concomitant]
  13. DARVOCET [Concomitant]
  14. ZOFRAN [Concomitant]

REACTIONS (15)
  - ASTHENIA [None]
  - COLOSTOMY [None]
  - DIVERTICULITIS [None]
  - DIVERTICULUM [None]
  - EATING DISORDER [None]
  - HAEMATOCRIT DECREASED [None]
  - INTESTINAL PERFORATION [None]
  - LETHARGY [None]
  - LOOSE STOOLS [None]
  - LUNG INFILTRATION [None]
  - NAUSEA [None]
  - PERITONITIS [None]
  - SEPSIS [None]
  - URINE ODOUR ABNORMAL [None]
  - VOMITING [None]
